FAERS Safety Report 11679058 (Version 1)
Quarter: 2015Q4

REPORT INFORMATION
  Report Type: Spontaneous
  Country: US (occurrence: US)
  Receive Date: 20151027
  Receipt Date: 20151027
  Transmission Date: 20160304
  Serious: No
  Sender: FDA-Public Use
  Company Number: US-ELI_LILLY_AND_COMPANY-US201006007764

PATIENT
  Age: 57 Year
  Sex: Female

DRUGS (3)
  1. FORTEO [Suspect]
     Active Substance: TERIPARATIDE
     Indication: OSTEOPOROSIS
     Dosage: 20 UG, DAILY (1/D)
     Route: 065
     Dates: start: 20100611
  2. FORTEO [Suspect]
     Active Substance: TERIPARATIDE
     Dosage: 20 UG, DAILY (1/D)
  3. FORTEO [Suspect]
     Active Substance: TERIPARATIDE
     Dosage: 20 UG, DAILY (1/D)
     Route: 065
     Dates: end: 20100806

REACTIONS (26)
  - Tenderness [Unknown]
  - Injection site pain [Unknown]
  - Cough [Not Recovered/Not Resolved]
  - Viral infection [Unknown]
  - Crying [Unknown]
  - Discomfort [Unknown]
  - Productive cough [Not Recovered/Not Resolved]
  - Muscular weakness [Unknown]
  - Malaise [Unknown]
  - Injection site extravasation [Unknown]
  - Feeling of despair [Unknown]
  - Headache [Recovered/Resolved]
  - Arthralgia [Unknown]
  - Throat tightness [Recovered/Resolved]
  - Malaise [Recovered/Resolved]
  - Contusion [Not Recovered/Not Resolved]
  - Rhinorrhoea [Unknown]
  - Musculoskeletal stiffness [Unknown]
  - Back pain [Not Recovered/Not Resolved]
  - Back pain [Recovered/Resolved]
  - Fall [Unknown]
  - Anxiety [Unknown]
  - Muscle spasms [Recovering/Resolving]
  - Pain in extremity [Not Recovered/Not Resolved]
  - Grip strength decreased [Unknown]
  - Insomnia [Unknown]

NARRATIVE: CASE EVENT DATE: 201006
